FAERS Safety Report 17237820 (Version 2)
Quarter: 2020Q1

REPORT INFORMATION
  Report Type: Spontaneous
  Country: IT (occurrence: IT)
  Receive Date: 20200106
  Receipt Date: 20200207
  Transmission Date: 20200409
  Serious: Yes (Hospitalization)
  Sender: FDA-Public Use
  Company Number: IT-MYLANLABS-2020M1001371

PATIENT
  Age: 79 Year
  Sex: Female
  Weight: 54 kg

DRUGS (1)
  1. FULVESTRANT. [Suspect]
     Active Substance: FULVESTRANT
     Indication: BREAST NEOPLASM
     Dosage: 500 MILLIGRAM
     Route: 030
     Dates: start: 20190923, end: 20190923

REACTIONS (2)
  - Pain in extremity [Recovering/Resolving]
  - Paraesthesia [Recovering/Resolving]

NARRATIVE: CASE EVENT DATE: 20190923
